FAERS Safety Report 14145285 (Version 1)
Quarter: 2017Q4

REPORT INFORMATION
  Report Type: Spontaneous
  Country: US (occurrence: US)
  Receive Date: 20171031
  Receipt Date: 20171031
  Transmission Date: 20180321
  Serious: No
  Sender: FDA-Public Use
  Company Number: US-ABBVIE-17P-163-1957086-00

PATIENT
  Sex: Female

DRUGS (1)
  1. BIAXIN [Suspect]
     Active Substance: CLARITHROMYCIN
     Indication: PHARYNGEAL OPERATION
     Route: 065

REACTIONS (3)
  - Pharyngeal oedema [Unknown]
  - Mouth swelling [Unknown]
  - Drug hypersensitivity [Unknown]
